FAERS Safety Report 20216428 (Version 1)
Quarter: 2021Q4

REPORT INFORMATION
  Report Type: Spontaneous
  Country: US (occurrence: None)
  Receive Date: 20211221
  Receipt Date: 20211221
  Transmission Date: 20220304
  Serious: No
  Sender: FDA-Public Use
  Company Number: None

PATIENT
  Sex: Male

DRUGS (6)
  1. AMBRISENTAN [Suspect]
     Active Substance: AMBRISENTAN
     Indication: Pulmonary hypertension
     Dosage: FREQUENCY : DAILY;?
     Route: 048
  2. AMBRISENTAN [Suspect]
     Active Substance: AMBRISENTAN
     Dosage: FREQUENCY : DAILY;?
     Route: 048
     Dates: start: 20190904
  3. DIGOXIN TAB 0.125MG [Concomitant]
  4. FUROSEMIDE TAB 80MG [Concomitant]
  5. SILDENAFIL [Concomitant]
     Active Substance: SILDENAFIL
  6. SPIROLACT TAB 25MG [Concomitant]

REACTIONS (1)
  - Cough [None]
